FAERS Safety Report 5902256-2 (Version None)
Quarter: 2008Q3

REPORT INFORMATION
  Report Type: 
  Country: None (occurrence: None)
  Receive Date: 20080929
  Receipt Date: 20071025
  Transmission Date: 20090109
  Serious: No
  Sender: FDA-Public Use
  Company Number: US-BAUSCH-2007BL003874

PATIENT
  Age: 50 Year
  Sex: Female

DRUGS (1)
  1. NEOMYCIN AND POLYMYXIN B SULFATES AND HYDROCORTISONE OTIC SUSPENSION [Suspect]
     Indication: EAR INFECTION
     Route: 001
     Dates: start: 20071002, end: 20071008

REACTIONS (3)
  - EAR PAIN [None]
  - HYPOACUSIS [None]
  - TYMPANIC MEMBRANE PERFORATION [None]
